FAERS Safety Report 5011288-0 (Version None)
Quarter: 2006Q2

REPORT INFORMATION
  Report Type: 
  Country: None (occurrence: None)
  Receive Date: 20060523
  Receipt Date: 20060523
  Transmission Date: 20061013
  Serious: No
  Sender: FDA-Public Use
  Company Number: None

PATIENT
  Sex: Male
  Weight: 103.4655 kg

DRUGS (7)
  1. LAMOTRIGINE [Suspect]
     Indication: DEPRESSION
     Dosage: 50 MG BID PO
     Route: 048
     Dates: start: 20060119, end: 20060216
  2. LAMOTRIGINE [Suspect]
     Indication: POST-TRAUMATIC STRESS DISORDER
     Dosage: 50 MG BID PO
     Route: 048
     Dates: start: 20060119, end: 20060216
  3. ATENOLOL [Concomitant]
  4. HYDROCHLOROTHIAZIDE [Concomitant]
  5. MIRTAZAPINE [Concomitant]
  6. PAROXETINE HCL [Concomitant]
  7. PROZOSIN [Concomitant]

REACTIONS (5)
  - MALAISE [None]
  - PAIN [None]
  - PRURITUS [None]
  - PYREXIA [None]
  - RASH GENERALISED [None]
